FAERS Safety Report 14069935 (Version 3)
Quarter: 2018Q1

REPORT INFORMATION
  Report Type: Spontaneous
  Country: US (occurrence: US)
  Receive Date: 20171010
  Receipt Date: 20180125
  Transmission Date: 20180508
  Serious: Yes (Hospitalization)
  Sender: FDA-Public Use
  Company Number: US-SA-2017SA194235

PATIENT
  Age: 42 Year
  Sex: Male
  Weight: 78.02 kg

DRUGS (12)
  1. CELECOXIB. [Concomitant]
     Active Substance: CELECOXIB
     Indication: PAIN
     Route: 065
     Dates: start: 2014
  2. AUBAGIO [Suspect]
     Active Substance: TERIFLUNOMIDE
     Indication: MULTIPLE SCLEROSIS
     Route: 048
     Dates: start: 20161228
  3. CLONAZEPAM. [Concomitant]
     Active Substance: CLONAZEPAM
     Indication: SLEEP DISORDER
     Route: 065
     Dates: start: 2014
  4. FLUOXETINE [Concomitant]
     Active Substance: FLUOXETINE HYDROCHLORIDE
     Indication: NERVOUS SYSTEM DISORDER
     Route: 065
     Dates: start: 2014
  5. TOLTERODINE [Concomitant]
     Active Substance: TOLTERODINE
     Route: 065
     Dates: start: 2014
  6. VITAMIN D3 [Concomitant]
     Active Substance: CHOLECALCIFEROL
     Indication: BONE DISORDER
     Route: 065
     Dates: start: 2014
  7. AMITRIPTYLINE HYDROCHLORIDE. [Concomitant]
     Active Substance: AMITRIPTYLINE HYDROCHLORIDE
     Route: 065
     Dates: start: 2014
  8. BREO ELLIPTA [Concomitant]
     Active Substance: FLUTICASONE FUROATE\VILANTEROL TRIFENATATE
     Indication: RESPIRATORY DISORDER
     Route: 065
     Dates: start: 20171016
  9. AUBAGIO [Suspect]
     Active Substance: TERIFLUNOMIDE
     Indication: MULTIPLE SCLEROSIS
     Route: 048
     Dates: start: 20161228
  10. AUBAGIO [Suspect]
     Active Substance: TERIFLUNOMIDE
     Indication: MULTIPLE SCLEROSIS
     Route: 048
     Dates: start: 20160201
  11. LYRICA [Concomitant]
     Active Substance: PREGABALIN
     Indication: NEURALGIA
     Route: 065
     Dates: start: 2014
  12. BACLOFEN. [Concomitant]
     Active Substance: BACLOFEN
     Indication: NERVOUS SYSTEM DISORDER
     Route: 065
     Dates: start: 2014

REACTIONS (2)
  - Coccydynia [Unknown]
  - Pneumonia [Unknown]
